FAERS Safety Report 7651187-9 (Version None)
Quarter: 2011Q3

REPORT INFORMATION
  Report Type: 
  Country: None (occurrence: None)
  Receive Date: 20110802
  Receipt Date: 20101214
  Transmission Date: 20111222
  Serious: Yes (Death)
  Sender: FDA-Public Use
  Company Number: US-BAYER-201029234NA

PATIENT
  Age: 53 Year
  Sex: Female
  Weight: 114.74 kg

DRUGS (37)
  1. PROHANCE [Suspect]
     Indication: NUCLEAR MAGNETIC RESONANCE IMAGING
  2. HUMULIN N [Concomitant]
  3. SENSIPAR [Concomitant]
  4. MIRAPEX [Concomitant]
  5. VASOTEC [Concomitant]
  6. ALLOPURINOL [Concomitant]
  7. PHOSLO [Concomitant]
  8. TORSEMIDE [Concomitant]
  9. AVANDIA [Concomitant]
  10. ASTELIN [Concomitant]
  11. DEMEDEX [Concomitant]
  12. WELLBUTRIN XL [Concomitant]
  13. OMNISCAN [Suspect]
     Indication: NUCLEAR MAGNETIC RESONANCE IMAGING
  14. MULTIHANCE [Suspect]
     Indication: NUCLEAR MAGNETIC RESONANCE IMAGING
  15. XOPENEX [Concomitant]
  16. GLUCOTROL [Concomitant]
  17. ACETYLSALICYLIC ACID SRT [Concomitant]
  18. ZYLOPRIM [Concomitant]
  19. EPOGEN [Concomitant]
  20. MAGNEVIST [Suspect]
     Indication: NUCLEAR MAGNETIC RESONANCE IMAGING
  21. SYNTHROID [Concomitant]
  22. ATIVAN [Concomitant]
  23. IBUPROFEN [Concomitant]
  24. HYDROCODONE BITARTRATE AND ACETAMINOPHEN [Concomitant]
  25. RENAGEL [Concomitant]
  26. OPTIMARK [Suspect]
     Indication: NUCLEAR MAGNETIC RESONANCE IMAGING
  27. NORCO [Concomitant]
  28. NEURONTIN [Concomitant]
  29. ENALAPRIL MALEATE [Concomitant]
  30. NPH INSULIN [Concomitant]
  31. SANTYL [Concomitant]
  32. ATROVENT [Concomitant]
  33. KEPPRA [Concomitant]
  34. REGULAR INSULIN [Concomitant]
  35. ZELNORM [Concomitant]
  36. VASOPRESSIN [Concomitant]
  37. ASPIRIN [Concomitant]

REACTIONS (13)
  - PAIN [None]
  - EMOTIONAL DISTRESS [None]
  - ANHEDONIA [None]
  - ANXIETY [None]
  - JOINT RANGE OF MOTION DECREASED [None]
  - ACTIVITIES OF DAILY LIVING IMPAIRED [None]
  - MOBILITY DECREASED [None]
  - NEPHROGENIC SYSTEMIC FIBROSIS [None]
  - INJURY [None]
  - PRURITUS [None]
  - SKIN DISCOLOURATION [None]
  - SKIN INDURATION [None]
  - SKIN TIGHTNESS [None]
